FAERS Safety Report 11122477 (Version 1)
Quarter: 2015Q2

REPORT INFORMATION
  Report Type: Spontaneous
  Country: US (occurrence: None)
  Receive Date: 20150518
  Receipt Date: 20150518
  Transmission Date: 20150821
  Serious: No
  Sender: FDA-Public Use
  Company Number: None

PATIENT
  Age: 58 Year
  Sex: Female
  Weight: 47.17 kg

DRUGS (7)
  1. RECLAST [Suspect]
     Active Substance: ZOLEDRONIC ACID
     Indication: OSTEOPOROSIS PROPHYLAXIS
     Dosage: STANDARD?, ONE TIME, INTO A VEIN
     Dates: start: 20150512, end: 20150512
  2. CALCIUM [Concomitant]
     Active Substance: CALCIUM
  3. SYNTHROID [Concomitant]
     Active Substance: LEVOTHYROXINE SODIUM
  4. ATORVASTATIN [Concomitant]
     Active Substance: ATORVASTATIN
  5. COENZYME Q10 [Concomitant]
     Active Substance: UBIDECARENONE
  6. PROBIOTIC [Concomitant]
     Active Substance: PROBIOTICS NOS
  7. VITAMIN D??? [Concomitant]

REACTIONS (5)
  - Musculoskeletal stiffness [None]
  - Joint swelling [None]
  - Gait disturbance [None]
  - Joint effusion [None]
  - Peripheral swelling [None]

NARRATIVE: CASE EVENT DATE: 20150512
